FAERS Safety Report 10382985 (Version 1)
Quarter: 2014Q3

REPORT INFORMATION
  Report Type: Spontaneous
  Country: US (occurrence: US)
  Receive Date: 20140813
  Receipt Date: 20140813
  Transmission Date: 20150326
  Serious: No
  Sender: FDA-Public Use
  Company Number: US-SA-2014SA074912

PATIENT
  Age: 24 Year
  Sex: Male
  Weight: 54.43 kg

DRUGS (3)
  1. FABRAZYME [Suspect]
     Active Substance: AGALSIDASE BETA
     Indication: FABRY^S DISEASE
     Dosage: FREQUENCY- EVERY 10-14 DAYS
     Route: 042
     Dates: start: 20060712
  2. FABRAZYME [Suspect]
     Active Substance: AGALSIDASE BETA
     Indication: FABRY^S DISEASE
     Dosage: FREQUENCY- EVERY 10-14 DAYS
     Route: 042
     Dates: start: 20060712
  3. CARBAMAZEPINE. [Concomitant]
     Active Substance: CARBAMAZEPINE
     Dosage: 100 MG TABLET, 200 MG IN AM AND 300 MG IN PM
     Dates: start: 201110

REACTIONS (2)
  - Cough [Unknown]
  - Nasopharyngitis [Unknown]

NARRATIVE: CASE EVENT DATE: 20140428
